FAERS Safety Report 24153487 (Version 3)
Quarter: 2024Q3

REPORT INFORMATION
  Report Type: Report from Study
  Country: US (occurrence: US)
  Receive Date: 20240730
  Receipt Date: 20240815
  Transmission Date: 20241016
  Serious: No
  Sender: APELLIS PHARMACEUTICALS
  Company Number: US-APELLIS-2024-APL-0000549

PATIENT

DRUGS (6)
  1. PEGCETACOPLAN [Suspect]
     Active Substance: PEGCETACOPLAN
     Indication: Paroxysmal nocturnal haemoglobinuria
     Dosage: INFUSE 1080 MG SUBCUTANEOUSLY EVERY 3 DAYS AS DIRECTED.1080
     Route: 058
     Dates: start: 20240715
  2. CLONAZEPAM [Concomitant]
     Active Substance: CLONAZEPAM
     Indication: Product used for unknown indication
  3. LITHIUM [Concomitant]
     Active Substance: LITHIUM
     Indication: Product used for unknown indication
  4. PROGESTERONE [Concomitant]
     Active Substance: PROGESTERONE
     Indication: Product used for unknown indication
  5. ESTROGEN NOS [Concomitant]
     Active Substance: ESTROGENS
     Indication: Product used for unknown indication
  6. TESTOSTERONE [Concomitant]
     Active Substance: TESTOSTERONE
     Indication: Product used for unknown indication

REACTIONS (2)
  - Fatigue [Unknown]
  - COVID-19 [Unknown]

NARRATIVE: CASE EVENT DATE: 20240715
